FAERS Safety Report 12691792 (Version 2)
Quarter: 2016Q3

REPORT INFORMATION
  Report Type: Spontaneous
  Country: CN (occurrence: CN)
  Receive Date: 20160826
  Receipt Date: 20160829
  Transmission Date: 20161109
  Serious: Yes (Other)
  Sender: FDA-Public Use
  Company Number: CN-GILEAD-2016-0229510

PATIENT
  Age: 52 Year
  Sex: Male

DRUGS (4)
  1. VIREAD [Suspect]
     Active Substance: TENOFOVIR DISOPROXIL FUMARATE
     Indication: HEPATITIS B
     Dosage: 1 DF, QD
     Route: 048
     Dates: start: 20160804
  2. INTERFERON [Suspect]
     Active Substance: INTERFERON
     Indication: HEPATITIS B
     Route: 065
  3. ENTECAVIR. [Suspect]
     Active Substance: ENTECAVIR
     Indication: HEPATITIS B
     Route: 065
  4. ADEFOVIR DIPIVOXIL. [Suspect]
     Active Substance: ADEFOVIR DIPIVOXIL
     Indication: HEPATITIS B
     Dosage: UNK
     Route: 048
     Dates: start: 2006, end: 2008

REACTIONS (7)
  - Drug ineffective [Unknown]
  - Acute kidney injury [Unknown]
  - Glomerular filtration rate decreased [Recovered/Resolved]
  - Blood phosphorus decreased [Unknown]
  - Viral load increased [Unknown]
  - Blood creatinine increased [Recovered/Resolved]
  - Drug resistance [Unknown]

NARRATIVE: CASE EVENT DATE: 20160815
